FAERS Safety Report 23874746 (Version 2)
Quarter: 2024Q3

REPORT INFORMATION
  Report Type: Report from Study
  Country: US (occurrence: US)
  Receive Date: 20240520
  Receipt Date: 20240808
  Transmission Date: 20241016
  Serious: Yes (Other)
  Sender: UCB
  Company Number: US-UCBSA-2024016111

PATIENT
  Sex: Female

DRUGS (3)
  1. CERTOLIZUMAB PEGOL [Suspect]
     Active Substance: CERTOLIZUMAB PEGOL
     Indication: Rheumatoid arthritis
     Dosage: 400 MILLIGRAM, EV 2 WEEKS(QOW)
     Dates: start: 20240229, end: 20240314
  2. KEFLEX [Suspect]
     Active Substance: CEPHALEXIN
     Indication: Cellulitis
     Dosage: UNK
     Dates: start: 2024
  3. METHOTREXATE [Concomitant]
     Active Substance: METHOTREXATE
     Indication: Product used for unknown indication
     Dosage: UNK
     Dates: end: 2024

REACTIONS (8)
  - Ophthalmic herpes zoster [Recovering/Resolving]
  - Cellulitis [Recovered/Resolved]
  - Nausea [Not Recovered/Not Resolved]
  - Vomiting [Not Recovered/Not Resolved]
  - Illness [Recovered/Resolved]
  - Herpes zoster [Recovered/Resolved]
  - Decreased immune responsiveness [Recovered/Resolved]
  - Drug intolerance [Unknown]

NARRATIVE: CASE EVENT DATE: 20240101
